FAERS Safety Report 17975803 (Version 3)
Quarter: 2020Q3

REPORT INFORMATION
  Report Type: Report from Study
  Country: HU (occurrence: HU)
  Receive Date: 20200702
  Receipt Date: 20200915
  Transmission Date: 20201103
  Serious: Yes (Hospitalization)
  Sender: FDA-Public Use
  Company Number: HU-EXELIXIS-XL18420030881

PATIENT
  Age: 38 Year
  Sex: Male
  Weight: 57 kg

DRUGS (15)
  1. BLINDED XL184 [Suspect]
     Active Substance: CABOZANTINIB
     Indication: MEDULLARY THYROID CANCER
     Dosage: 140 OR 60 MG, QD
     Route: 048
     Dates: start: 20190403
  2. NEO FERRO FOLGAMMA [Concomitant]
  3. MINIPRESS [Concomitant]
     Active Substance: PRAZOSIN HYDROCHLORIDE
  4. DICLOPRAM [Concomitant]
  5. SIRDALUD [Concomitant]
     Active Substance: TIZANIDINE
  6. MILGAMMA [Concomitant]
  7. VENTER [Concomitant]
  8. BLINDED XL184 [Suspect]
     Active Substance: CABOZANTINIB
     Dosage: 60 OR 20 MG, QD
     Route: 048
  9. ALGOPYRIN (AMINOPHENAZONE) [Concomitant]
     Active Substance: AMINOPHENAZONE
  10. BLINDED XL184 [Suspect]
     Active Substance: CABOZANTINIB
     Indication: MEDULLARY THYROID CANCER
     Dosage: 140 OR 60 MG, QD
     Route: 048
     Dates: start: 20190403
  11. BLINDED XL184 [Suspect]
     Active Substance: CABOZANTINIB
     Dosage: 60 OR 20 MG, QD
     Route: 048
  12. MEFORAL [Concomitant]
     Active Substance: METFORMIN HYDROCHLORIDE
  13. PANTOPRAZOLE [Concomitant]
     Active Substance: PANTOPRAZOLE
  14. SKUDEXA [Concomitant]
     Active Substance: DEXKETOPROFEN\TRAMADOL
  15. CATAFLAM [Concomitant]
     Active Substance: DICLOFENAC POTASSIUM

REACTIONS (1)
  - Muscle atrophy [Not Recovered/Not Resolved]

NARRATIVE: CASE EVENT DATE: 20200120
